FAERS Safety Report 8300950 (Version 6)
Quarter: 2015Q1

REPORT INFORMATION
  Report Type: Spontaneous
  Country: US (occurrence: US)
  Receive Date: 20111219
  Receipt Date: 20150122
  Transmission Date: 20150721
  Serious: Yes (Hospitalization, Other)
  Sender: FDA-Public Use
  Company Number: US-ASTRAZENECA-2010SE59290

PATIENT
  Age: 56 Year
  Sex: Female
  Weight: 63.5 kg

DRUGS (17)
  1. CALECYCLOVIR [Concomitant]
  2. MEDICATION [Concomitant]
     Active Substance: UNSPECIFIED INGREDIENT
     Indication: BARRETT^S OESOPHAGUS
  3. CRESTOR [Suspect]
     Active Substance: ROSUVASTATIN CALCIUM
     Indication: BLOOD CHOLESTEROL INCREASED
     Route: 048
     Dates: start: 2006
  4. UNSPECIFIED MEDICATION [Suspect]
     Active Substance: UNSPECIFIED INGREDIENT
     Indication: BARRETT^S OESOPHAGUS
     Route: 065
  5. BENADRYL [Concomitant]
     Active Substance: DIPHENHYDRAMINE HYDROCHLORIDE
  6. PRAVASTATIN [Suspect]
     Active Substance: PRAVASTATIN\PRAVASTATIN SODIUM
     Route: 065
  7. MELATONIN [Concomitant]
     Active Substance: MELATONIN
     Indication: SLEEP DISORDER
  8. MULTI VITAMIN [Concomitant]
     Active Substance: VITAMINS
     Dosage: DAILY
  9. OSTEO BI FLEX GLUCOSE [Concomitant]
  10. AMBIEN [Concomitant]
     Active Substance: ZOLPIDEM TARTRATE
     Indication: SLEEP DISORDER
  11. D3 [Concomitant]
     Active Substance: 25-HYDROXYCHOLECALCIFEROL, 5-TRANS-
  12. LYSINE [Concomitant]
     Active Substance: LYSINE
  13. CRESTOR [Suspect]
     Active Substance: ROSUVASTATIN CALCIUM
     Indication: CARDIAC DISORDER
     Dosage: THE PATIENT TOOK MEDICATION AT NIGHT INSEAD MORNING
     Route: 048
  14. FLONASE [Concomitant]
     Active Substance: FLUTICASONE PROPIONATE
     Indication: HYPERSENSITIVITY
  15. CRESTOR [Suspect]
     Active Substance: ROSUVASTATIN CALCIUM
     Indication: CARDIAC DISORDER
     Route: 048
     Dates: start: 2006
  16. CRESTOR [Suspect]
     Active Substance: ROSUVASTATIN CALCIUM
     Indication: BLOOD CHOLESTEROL INCREASED
     Dosage: THE PATIENT TOOK MEDICATION AT NIGHT INSEAD MORNING
     Route: 048
  17. ASPIRIN. [Concomitant]
     Active Substance: ASPIRIN

REACTIONS (25)
  - Ligament rupture [Unknown]
  - Sinusitis [Unknown]
  - Diarrhoea [Unknown]
  - Lactose intolerance [Unknown]
  - Malaise [Unknown]
  - Stress [Not Recovered/Not Resolved]
  - Barrett^s oesophagus [Unknown]
  - Drug dose omission [Not Recovered/Not Resolved]
  - Aphonia [Unknown]
  - Arthropathy [Unknown]
  - Cow^s milk intolerance [Unknown]
  - Post procedural haemorrhage [Unknown]
  - Chest pain [Unknown]
  - Insomnia [Unknown]
  - Peripheral swelling [Unknown]
  - Blood cholesterol increased [Unknown]
  - Skin cancer [Unknown]
  - Tooth fracture [Unknown]
  - Multiple injuries [Unknown]
  - Therapy cessation [Unknown]
  - Inappropriate schedule of drug administration [Unknown]
  - Lower extremity mass [Unknown]
  - Gastrooesophageal reflux disease [Unknown]
  - Oral herpes [Unknown]
  - Intentional product misuse [Unknown]

NARRATIVE: CASE EVENT DATE: 2006
